FAERS Safety Report 16719740 (Version 3)
Quarter: 2019Q3

REPORT INFORMATION
  Report Type: Report from Study
  Country: BW (occurrence: BW)
  Receive Date: 20190820
  Receipt Date: 20190823
  Transmission Date: 20191005
  Serious: Yes (Other)
  Sender: FDA-Public Use
  Company Number: BW-GILEAD-2019-0424231

PATIENT
  Age: 0 Year

DRUGS (9)
  1. IRON [Concomitant]
     Active Substance: IRON
  2. TENOFOVIR DISOPROXIL FUMARATE. [Suspect]
     Active Substance: TENOFOVIR DISOPROXIL FUMARATE
     Indication: HIV INFECTION
     Route: 064
  3. AZITHROMYCIN ANHYDROUS. [Concomitant]
     Active Substance: AZITHROMYCIN ANHYDROUS
  4. METRONIDAZOLE. [Concomitant]
     Active Substance: METRONIDAZOLE
  5. VITAMINS NOS [Concomitant]
     Active Substance: VITAMINS
  6. CEFTRIAXONE. [Concomitant]
     Active Substance: CEFTRIAXONE
  7. EMTRICITABINE [Suspect]
     Active Substance: EMTRICITABINE
     Indication: HIV INFECTION
     Route: 064
  8. TIVICAY [Suspect]
     Active Substance: DOLUTEGRAVIR SODIUM
     Indication: HIV INFECTION
     Route: 064
  9. FOLATE [Concomitant]
     Active Substance: FOLATE SODIUM

REACTIONS (2)
  - Foetal exposure during pregnancy [Recovered/Resolved]
  - Exomphalos [Unknown]

NARRATIVE: CASE EVENT DATE: 20171129
